FAERS Safety Report 8824869 (Version 1)
Quarter: 2012Q4

REPORT INFORMATION
  Report Type: 
  Country: US (occurrence: US)
  Receive Date: 20121004
  Receipt Date: 20121004
  Transmission Date: 20130627
  Serious: Yes (Hospitalization)
  Sender: FDA-Public Use
  Company Number: US-BAYER-2012-101162

PATIENT
  Age: 37 Year
  Sex: Female

DRUGS (11)
  1. OCELLA [Suspect]
     Dosage: UNK
     Dates: start: 20080807, end: 20120523
  2. PROMETHAZINE HYDROCHLORIDE [Concomitant]
     Dosage: UNK
  3. CHLORZOXAZONE [Concomitant]
     Dosage: UNK
  4. PROMETHAZINE [Concomitant]
     Dosage: 25 mg/ml, UNK
  5. DIPHENHYDRAMINE HYDROCHLORIDE [Concomitant]
     Dosage: 1 mL 50 mg/mL
  6. BUTALBITAL, ACETAMINOPHEN + CAFFEINE [Concomitant]
     Dosage: UNK
  7. PROVIGIL [Concomitant]
     Dosage: UNK
  8. VENLAFAXINE HYDROCHLORIDE [Concomitant]
     Dosage: 150 mg, UNK
  9. VENLAFAXINE HYDROCHLORIDE [Concomitant]
     Dosage: 75 mg, UNK
  10. OTHER ANTIDEPRESSANTS [Concomitant]
     Dosage: UNK
  11. NUVIGIL [Concomitant]
     Dosage: UNK

REACTIONS (3)
  - Deep vein thrombosis [None]
  - Pulmonary embolism [None]
  - Dyspnoea [None]
